FAERS Safety Report 24091840 (Version 1)
Quarter: 2024Q3

REPORT INFORMATION
  Report Type: Spontaneous
  Country: US (occurrence: US)
  Receive Date: 20240715
  Receipt Date: 20240715
  Transmission Date: 20241016
  Serious: No
  Sender: PERRIGO
  Company Number: US-PERRIGO-24US000494

PATIENT
  Age: 51 Year
  Sex: Female
  Weight: 47.619 kg

DRUGS (3)
  1. MINOXIDIL [Suspect]
     Active Substance: MINOXIDIL
     Indication: Alopecia
     Dosage: 0.75 ML, QD
     Route: 061
     Dates: start: 202312
  2. MINOXIDIL [Suspect]
     Active Substance: MINOXIDIL
     Dosage: 0.5 TO 0.75 ML, BID
     Route: 061
     Dates: start: 20230727, end: 202312
  3. VITAMIN D NOS [Concomitant]
     Active Substance: CHOLECALCIFEROL\ERGOCALCIFEROL
     Indication: Vitamin supplementation
     Dosage: UNKNOWN, PRN
     Route: 065
     Dates: start: 2023

REACTIONS (2)
  - Hair growth abnormal [Recovering/Resolving]
  - Drug ineffective for unapproved indication [Unknown]

NARRATIVE: CASE EVENT DATE: 20231027
